FAERS Safety Report 9990384 (Version 1)
Quarter: 2014Q1

REPORT INFORMATION
  Report Type: Report from Study
  Country: US (occurrence: US)
  Receive Date: 20140310
  Receipt Date: 20140310
  Transmission Date: 20141002
  Serious: No
  Sender: FDA-Public Use
  Company Number: US-ABBVIE-13P-163-1133739-00

PATIENT
  Age: 36 Year
  Sex: Male

DRUGS (5)
  1. HUMIRA [Suspect]
     Indication: CROHN^S DISEASE
     Dates: start: 20130730, end: 20130730
  2. HUMIRA [Suspect]
     Dates: start: 20130731, end: 20130731
  3. HUMIRA [Suspect]
  4. PREDNISONE [Concomitant]
     Indication: SMALL INTESTINAL OBSTRUCTION
     Dosage: 40 MG DAILY
  5. PROAIR [Concomitant]
     Indication: ASTHMA
     Dosage: EVERY 4-6 HOURS

REACTIONS (4)
  - Wheezing [Not Recovered/Not Resolved]
  - Respiratory disorder [Not Recovered/Not Resolved]
  - Dyspnoea [Not Recovered/Not Resolved]
  - Gastrointestinal disorder [Not Recovered/Not Resolved]
